FAERS Safety Report 7481961-3 (Version None)
Quarter: 2011Q2

REPORT INFORMATION
  Report Type: 
  Country: None (occurrence: None)
  Receive Date: 20110516
  Receipt Date: 20110512
  Transmission Date: 20111010
  Serious: Yes (Hospitalization)
  Sender: FDA-Public Use
  Company Number: HU-MERCK-1105USA01037

PATIENT
  Age: 80 Year
  Sex: Female
  Weight: 67 kg

DRUGS (7)
  1. FOSAMAX PLUS D [Suspect]
     Indication: OSTEOPOROSIS
     Route: 048
     Dates: start: 20090101, end: 20110401
  2. REFLUXON [Concomitant]
     Indication: ARTERIOSCLEROSIS CORONARY ARTERY
     Route: 048
  3. ISOPTIN SR [Concomitant]
     Indication: ARTERIOSCLEROSIS CORONARY ARTERY
     Route: 065
  4. TRAMADOL HYDROCHLORIDE [Concomitant]
     Indication: ARTERIOSCLEROSIS CORONARY ARTERY
     Route: 065
  5. CALCIVID [Concomitant]
     Indication: OSTEOPOROSIS
     Route: 065
  6. MEDROL [Concomitant]
     Indication: POLYMYALGIA RHEUMATICA
     Route: 065
  7. CLEXANE (ENOXAPARIN SODIUM) [Concomitant]
     Indication: ARTERIOSCLEROSIS CORONARY ARTERY
     Route: 065

REACTIONS (1)
  - FEMUR FRACTURE [None]
